FAERS Safety Report 22298113 (Version 1)
Quarter: 2023Q2

REPORT INFORMATION
  Report Type: Spontaneous
  Country: US (occurrence: US)
  Receive Date: 20230509
  Receipt Date: 20230509
  Transmission Date: 20230722
  Serious: No
  Sender: FDA-Public Use
  Company Number: US-UNITED THERAPEUTICS-UNT-2023-012055

PATIENT
  Age: 63 Year
  Sex: Female
  Weight: 69.388 kg

DRUGS (2)
  1. REMODULIN [Suspect]
     Active Substance: TREPROSTINIL
     Indication: Pulmonary arterial hypertension
     Dosage: 0.040 ?G/KG, (SELF-FILL CASSETTE WITH 1.9 ML. PUMP RATE OF 19 MCL PER HOUR.), CONTINUING
     Route: 058
     Dates: start: 202304
  2. REMODULIN [Suspect]
     Active Substance: TREPROSTINIL
     Dosage: UNK, CONTINUING
     Route: 058
     Dates: start: 20230403

REACTIONS (8)
  - Infusion site infection [Unknown]
  - Infusion site erythema [Unknown]
  - Infusion site warmth [Recovering/Resolving]
  - Infusion site rash [Unknown]
  - Multiple allergies [Unknown]
  - Infusion site pruritus [Recovering/Resolving]
  - Infusion site irritation [Recovering/Resolving]
  - Infusion site pain [Recovering/Resolving]

NARRATIVE: CASE EVENT DATE: 20230401
